FAERS Safety Report 17145564 (Version 1)
Quarter: 2019Q4

REPORT INFORMATION
  Report Type: Spontaneous
  Country: US (occurrence: US)
  Receive Date: 20191119
  Receipt Date: 20191119
  Transmission Date: 20200122
  Serious: Yes (Hospitalization)
  Sender: FDA-Public Use
  Company Number: None

PATIENT
  Age: 52 Year
  Sex: Male
  Weight: 110 kg

DRUGS (1)
  1. KETOROLAC TROMETHAMINE. [Suspect]
     Active Substance: KETOROLAC TROMETHAMINE
     Indication: PAIN
     Route: 030
     Dates: start: 20180904, end: 20180905

REACTIONS (6)
  - Urine output decreased [None]
  - Flank pain [None]
  - Renal failure [None]
  - Acute kidney injury [None]
  - Blood urine present [None]
  - Nephrolithiasis [None]

NARRATIVE: CASE EVENT DATE: 20180905
